FAERS Safety Report 13144562 (Version 1)
Quarter: 2017Q1

REPORT INFORMATION
  Report Type: Spontaneous
  Country: US (occurrence: US)
  Receive Date: 20170124
  Receipt Date: 20170124
  Transmission Date: 20170428
  Serious: No
  Sender: FDA-Public Use
  Company Number: US-TEVA-658412USA

PATIENT
  Sex: Female

DRUGS (3)
  1. BUPROPION. [Interacting]
     Active Substance: BUPROPION
     Route: 065
  2. FLUDROCORTISONE [Suspect]
     Active Substance: FLUDROCORTISONE
     Route: 065
  3. NORTHERA [Interacting]
     Active Substance: DROXIDOPA
     Route: 065

REACTIONS (2)
  - Drug interaction [Unknown]
  - Abdominal pain [Unknown]
